FAERS Safety Report 15653747 (Version 2)
Quarter: 2019Q3

REPORT INFORMATION
  Report Type: Spontaneous
  Country: US (occurrence: US)
  Receive Date: 20181124
  Receipt Date: 20190716
  Transmission Date: 20191004
  Serious: Yes (Hospitalization, Other)
  Sender: FDA-Public Use
  Company Number: US-JNJFOC-20181110359

PATIENT
  Age: 55 Year
  Sex: Male

DRUGS (1)
  1. INVOKANA [Suspect]
     Active Substance: CANAGLIFLOZIN
     Indication: TYPE 2 DIABETES MELLITUS
     Route: 048
     Dates: start: 20150209

REACTIONS (5)
  - Diabetic foot infection [Unknown]
  - Foot amputation [Unknown]
  - Osteomyelitis [Unknown]
  - Injury [Unknown]
  - Toe amputation [Unknown]

NARRATIVE: CASE EVENT DATE: 20150707
